FAERS Safety Report 23468954 (Version 1)
Quarter: 2024Q1

REPORT INFORMATION
  Report Type: Spontaneous
  Country: US (occurrence: US)
  Receive Date: 20240202
  Receipt Date: 20240202
  Transmission Date: 20240410
  Serious: No
  Sender: FDA-Public Use
  Company Number: US-BRISTOL-MYERS SQUIBB COMPANY-2024-017535

PATIENT
  Age: 71 Year
  Sex: Male

DRUGS (1)
  1. IDHIFA [Suspect]
     Active Substance: ENASIDENIB MESYLATE
     Indication: Product used for unknown indication
     Dosage: DOSAGE TEXT : DOSE AND FREQ : TAKE 1 TABLET BY MOUTH ONCE DAILY. SWALLOW WHOLE; DO NOT CHEW OR SPLIT
     Route: 048

REACTIONS (1)
  - COVID-19 [Recovering/Resolving]
